FAERS Safety Report 5046028-2 (Version None)
Quarter: 2006Q3

REPORT INFORMATION
  Report Type: 
  Country: None (occurrence: None)
  Receive Date: 20060710
  Receipt Date: 20060629
  Transmission Date: 20061208
  Serious: Yes (Life-Threatening, Hospitalization)
  Sender: FDA-Public Use
  Company Number: FR-GILEAD-2006-0009826

PATIENT
  Sex: Male
  Weight: 70 kg

DRUGS (4)
  1. VIREAD [Suspect]
     Indication: HIV INFECTION
     Route: 048
     Dates: start: 20060329, end: 20060502
  2. ZIAGEN [Concomitant]
     Indication: HIV INFECTION
     Dates: start: 20050701, end: 20060502
  3. KALETRA [Concomitant]
     Indication: HIV INFECTION
     Dates: start: 20050601, end: 20060502
  4. BACTRIM [Concomitant]
     Indication: PROPHYLAXIS
     Dates: start: 20050601

REACTIONS (5)
  - GENERAL PHYSICAL HEALTH DETERIORATION [None]
  - METABOLIC ACIDOSIS [None]
  - PYREXIA [None]
  - RENAL FAILURE ACUTE [None]
  - VOMITING [None]
